FAERS Safety Report 13163899 (Version 2)
Quarter: 2017Q2

REPORT INFORMATION
  Report Type: Spontaneous
  Country: DK (occurrence: DK)
  Receive Date: 20170130
  Receipt Date: 20170421
  Transmission Date: 20170830
  Serious: Yes (Hospitalization)
  Sender: FDA-Public Use
  Company Number: DK-SA-2017SA012926

PATIENT
  Age: 0 Day
  Sex: Male
  Weight: 2.75 kg

DRUGS (8)
  1. TRANDATE [Concomitant]
     Active Substance: LABETALOL HYDROCHLORIDE
     Indication: HYPOGLYCAEMIA NEONATAL
     Dosage: UNK
     Route: 064
     Dates: start: 20161229
  2. LANTUS [Suspect]
     Active Substance: INSULIN GLARGINE
     Indication: TYPE 1 DIABETES MELLITUS
     Dosage: 22 U, QD DOSE:22 UNIT(S)
     Route: 064
     Dates: start: 20160614, end: 20161230
  3. NOVORAPID [Suspect]
     Active Substance: INSULIN ASPART
     Indication: TYPE 1 DIABETES MELLITUS
     Dosage: 22 U, QD DOSE:22 UNIT(S)
     Route: 064
     Dates: start: 20160407, end: 20161230
  4. NOVORAPID [Suspect]
     Active Substance: INSULIN ASPART
     Indication: TYPE 1 DIABETES MELLITUS
     Dosage: 22 U, QD DOSE:22 UNIT(S)
     Route: 063
     Dates: start: 20161230, end: 20170117
  5. SOLOSTAR [Concomitant]
     Active Substance: DEVICE
     Dates: start: 20160407, end: 20160614
  6. LANTUS [Suspect]
     Active Substance: INSULIN GLARGINE
     Indication: TYPE 1 DIABETES MELLITUS
     Dosage: DOSE:22 UNIT(S)
     Route: 063
     Dates: start: 20161230, end: 20170117
  7. TOUJEO [Suspect]
     Active Substance: INSULIN GLARGINE
     Indication: TYPE 1 DIABETES MELLITUS
     Dosage: 22 U, QD DOSE:22 UNIT(S)
     Route: 064
     Dates: start: 20160407, end: 20160614
  8. GRAVITAMIN [Concomitant]
     Indication: PROPHYLAXIS
     Route: 064
     Dates: start: 20160407

REACTIONS (2)
  - Foetal exposure during pregnancy [Unknown]
  - Exposure during breast feeding [Unknown]

NARRATIVE: CASE EVENT DATE: 20160407
